FAERS Safety Report 4738213-1 (Version None)
Quarter: 2005Q3

REPORT INFORMATION
  Report Type: 
  Country: None (occurrence: None)
  Receive Date: 20050803
  Receipt Date: 20050712
  Transmission Date: 20060218
  Serious: Yes (Other)
  Sender: FDA-Public Use
  Company Number: USA0507102560

PATIENT
  Age: 71 Year
  Sex: Female
  Weight: 84 kg

DRUGS (9)
  1. HUMALOG [Suspect]
     Indication: DIABETES MELLITUS
     Dosage: 4 U
  2. HUMULIN N [Suspect]
     Indication: DIABETES MELLITUS
     Dosage: 8 U
  3. HUMALOG MIX 75/25 [Concomitant]
     Indication: DIABETES MELLITUS
     Dosage: 10 U
  4. COZAAR [Concomitant]
  5. PREVACID [Concomitant]
  6. ACTOS (PIAGLITAZONE HYDROCHLORIDE) [Concomitant]
  7. FUROSEMIDE [Concomitant]
  8. AMIODARONE [Concomitant]
  9. GLUCOPHAGE (METFORMIN/00082701/) [Concomitant]

REACTIONS (3)
  - BLOOD GLUCOSE INCREASED [None]
  - BREAST CANCER FEMALE [None]
  - PHARMACEUTICAL PRODUCT COMPLAINT [None]
